FAERS Safety Report 13720101 (Version 6)
Quarter: 2017Q3

REPORT INFORMATION
  Report Type: Spontaneous
  Country: US (occurrence: US)
  Receive Date: 20170706
  Receipt Date: 20170926
  Transmission Date: 20171127
  Serious: Yes (Other)
  Sender: FDA-Public Use
  Company Number: PHEH2017US020656

PATIENT
  Sex: Female
  Weight: 49.75 kg

DRUGS (2)
  1. LENVATINIB [Suspect]
     Active Substance: LENVATINIB
     Indication: ENDOMETRIAL CANCER
     Dosage: 10 MG, QD
     Route: 048
     Dates: start: 20170624, end: 20170919
  2. AFINITOR [Suspect]
     Active Substance: EVEROLIMUS
     Indication: ENDOMETRIAL CANCER
     Dosage: 5 MG, QD
     Route: 048

REACTIONS (20)
  - Hypertension [Recovered/Resolved]
  - Stomatitis [Unknown]
  - Tongue disorder [Unknown]
  - Diarrhoea [Unknown]
  - Neutrophil count decreased [Unknown]
  - Platelet count decreased [Unknown]
  - Headache [Unknown]
  - Cough [Unknown]
  - Endometrial cancer [Unknown]
  - Blood lactate dehydrogenase abnormal [Unknown]
  - Alanine aminotransferase increased [Unknown]
  - Hypertension [Unknown]
  - Malignant neoplasm progression [Unknown]
  - Dizziness [Unknown]
  - Aspartate aminotransferase increased [Unknown]
  - Dysgeusia [Unknown]
  - Product use in unapproved indication [Unknown]
  - Blood glucose abnormal [Unknown]
  - Aspartate aminotransferase abnormal [Unknown]
  - White blood cell count decreased [Unknown]
